FAERS Safety Report 9199875 (Version 1)
Quarter: 2013Q1

REPORT INFORMATION
  Report Type: Spontaneous
  Country: CO (occurrence: CO)
  Receive Date: 20130329
  Receipt Date: 20130329
  Transmission Date: 20140127
  Serious: Yes (Hospitalization, Other)
  Sender: FDA-Public Use
  Company Number: CO-SANOFI-AVENTIS-2013SA033113

PATIENT
  Age: 76 Year
  Sex: Male

DRUGS (1)
  1. FUROSEMIDE [Suspect]
     Indication: OEDEMA PERIPHERAL
     Route: 065

REACTIONS (6)
  - Toxic epidermal necrolysis [Recovering/Resolving]
  - Generalised erythema [Recovering/Resolving]
  - Skin exfoliation [Recovering/Resolving]
  - Conjunctival disorder [Recovering/Resolving]
  - Staphylococcal bacteraemia [Unknown]
  - Eosinophilia [Recovered/Resolved]
